FAERS Safety Report 7206090-5 (Version None)
Quarter: 2011Q1

REPORT INFORMATION
  Report Type: 
  Country: None (occurrence: None)
  Receive Date: 20110103
  Receipt Date: 20101220
  Transmission Date: 20110831
  Serious: Yes (Hospitalization, Other)
  Sender: FDA-Public Use
  Company Number: US-ELI_LILLY_AND_COMPANY-US201012005240

PATIENT
  Sex: Female

DRUGS (8)
  1. ISOSORBIDE DINITRATE [Concomitant]
  2. RANEXA [Concomitant]
  3. NEXIUM [Concomitant]
  4. METOPROLOL [Concomitant]
  5. DIOVAN [Concomitant]
  6. POTASSIUM [Concomitant]
  7. FORTEO [Suspect]
     Indication: OSTEOPOROSIS
     Dosage: 20 UG, DAILY (1/D)
     Dates: start: 20100901, end: 20101216
  8. ARICEPT [Concomitant]

REACTIONS (7)
  - EXPRESSIVE LANGUAGE DISORDER [None]
  - BLOOD GLUCOSE DECREASED [None]
  - TRANSIENT ISCHAEMIC ATTACK [None]
  - MEMORY IMPAIRMENT [None]
  - ASTHENIA [None]
  - MUSCLE SPASMS [None]
  - TEARFULNESS [None]
